FAERS Safety Report 23769366 (Version 1)
Quarter: 2024Q2

REPORT INFORMATION
  Report Type: Spontaneous
  Country: US (occurrence: US)
  Receive Date: 20240422
  Receipt Date: 20240422
  Transmission Date: 20240716
  Serious: Yes (Hospitalization, Other)
  Sender: FDA-Public Use
  Company Number: US-HALEON-2169074

PATIENT
  Age: 41 Year
  Sex: Male

DRUGS (1)
  1. ACETAMINOPHEN [Suspect]
     Active Substance: ACETAMINOPHEN
     Indication: Toothache

REACTIONS (10)
  - Acute hepatic failure [Recovering/Resolving]
  - Toxicity to various agents [Recovering/Resolving]
  - Jaundice [Recovering/Resolving]
  - Abdominal pain upper [Recovering/Resolving]
  - Lactic acidosis [Recovering/Resolving]
  - Acute kidney injury [Recovering/Resolving]
  - Acidosis hyperchloraemic [Recovering/Resolving]
  - Hepatomegaly [Recovering/Resolving]
  - Ascites [Recovering/Resolving]
  - Encephalopathy [Recovering/Resolving]
